FAERS Safety Report 21468714 (Version 2)
Quarter: 2023Q1

REPORT INFORMATION
  Report Type: Spontaneous
  Country: US (occurrence: US)
  Receive Date: 20221018
  Receipt Date: 20230123
  Transmission Date: 20230418
  Serious: No
  Sender: FDA-Public Use
  Company Number: US-SA-SAC20221017000163

PATIENT
  Age: 82 Year
  Sex: Male

DRUGS (2)
  1. DUPIXENT [Suspect]
     Active Substance: DUPILUMAB
     Dosage: 300 MG, OTHER
     Route: 058
  2. ESBRIET [Suspect]
     Active Substance: PIRFENIDONE

REACTIONS (4)
  - Photosensitivity reaction [Unknown]
  - Skin exfoliation [Unknown]
  - Arthralgia [Unknown]
  - Incorrect dose administered [Unknown]
